FAERS Safety Report 16784683 (Version 2)
Quarter: 2019Q4

REPORT INFORMATION
  Report Type: Report from Study
  Country: US (occurrence: US)
  Receive Date: 20190909
  Receipt Date: 20191003
  Transmission Date: 20200122
  Serious: Yes (Other)
  Sender: FDA-Public Use
  Company Number: US-ROCHE-2397221

PATIENT
  Sex: Female
  Weight: 90.8 kg

DRUGS (1)
  1. OCREVUS [Suspect]
     Active Substance: OCRELIZUMAB
     Indication: SECONDARY PROGRESSIVE MULTIPLE SCLEROSIS
     Dosage: THEN EVERY 6 MONTHS,?PREVIOUS INFUSION DATE: 08/MAR/2019, 05/SEP/2019
     Route: 042
     Dates: start: 201810

REACTIONS (2)
  - Therapeutic response shortened [Unknown]
  - Secondary progressive multiple sclerosis [Not Recovered/Not Resolved]
